FAERS Safety Report 15261935 (Version 1)
Quarter: 2018Q3

REPORT INFORMATION
  Report Type: Spontaneous
  Country: US (occurrence: US)
  Receive Date: 20180719
  Receipt Date: 20180719
  Transmission Date: 20181010
  Serious: Yes (Hospitalization)
  Sender: FDA-Public Use
  Company Number: None

PATIENT
  Age: 54 Year
  Sex: Female

DRUGS (1)
  1. TACROLIMUS CAP 1MG [Suspect]
     Active Substance: TACROLIMUS
     Indication: LIVER TRANSPLANT

REACTIONS (4)
  - Alopecia [None]
  - Abdominal discomfort [None]
  - Liver abscess [None]
  - Nervousness [None]

NARRATIVE: CASE EVENT DATE: 20170501
